FAERS Safety Report 4908373-8 (Version None)
Quarter: 2006Q1

REPORT INFORMATION
  Report Type: 
  Country: None (occurrence: None)
  Receive Date: 20060210
  Receipt Date: 20060202
  Transmission Date: 20060701
  Serious: Yes (Other)
  Sender: FDA-Public Use
  Company Number: PHEH2006US01701

PATIENT
  Age: 56 Year
  Sex: Female
  Weight: 63.492 kg

DRUGS (2)
  1. ZOMETA [Suspect]
     Dosage: 4 MG ONE TIME PER MONTH
     Dates: start: 20000101
  2. ZOLADEX [Concomitant]

REACTIONS (1)
  - OSTEONECROSIS [None]
